FAERS Safety Report 22884063 (Version 6)
Quarter: 2025Q1

REPORT INFORMATION
  Report Type: Spontaneous
  Country: FR (occurrence: FR)
  Receive Date: 20230830
  Receipt Date: 20250108
  Transmission Date: 20250408
  Serious: Yes (Hospitalization)
  Sender: ROCHE
  Company Number: None

PATIENT
  Age: 22 Year
  Sex: Male
  Weight: 88 kg

DRUGS (1)
  1. ZELBORAF [Suspect]
     Active Substance: VEMURAFENIB
     Indication: Astrocytoma, low grade
     Route: 065
     Dates: start: 20210610, end: 20221025

REACTIONS (6)
  - Osteopenia [Recovering/Resolving]
  - Femur fracture [Recovered/Resolved]
  - Diarrhoea [Recovered/Resolved]
  - Photosensitivity reaction [Recovered/Resolved]
  - Arthralgia [Recovered/Resolved]
  - Off label use [Unknown]

NARRATIVE: CASE EVENT DATE: 20210707
